FAERS Safety Report 4366622-1 (Version None)
Quarter: 2004Q2

REPORT INFORMATION
  Report Type: 
  Country: None (occurrence: None)
  Receive Date: 20040524
  Receipt Date: 20040506
  Transmission Date: 20050107
  Serious: Yes (Hospitalization)
  Sender: FDA-Public Use
  Company Number: CA-SHR-04-024223

PATIENT
  Age: 49 Year
  Sex: Female

DRUGS (15)
  1. BETASERON [Suspect]
     Indication: MULTIPLE SCLEROSIS
     Dosage: 8 MIU, EVERY 2D, SUBCUTANEOUS
     Route: 058
     Dates: start: 19981109
  2. TYLENOL W/ CODEINE NO. 3 [Suspect]
  3. OXYBUTYNIN [Concomitant]
  4. TOPIRMATE [Concomitant]
  5. BACLOFEN [Concomitant]
  6. BROMAZEPAM [Concomitant]
  7. CES (ESTROGENS CONJUGATED) [Concomitant]
  8. FLONASE [Concomitant]
  9. LOSEC (OMEPRAZOLE) [Concomitant]
  10. EFFEXOR XR [Concomitant]
  11. ZOPICLONE [Concomitant]
  12. LORAZEPAM [Concomitant]
  13. DOCUSATE CALCIUM [Concomitant]
  14. GABAPENTIN [Concomitant]
  15. FLOVENT [Concomitant]

REACTIONS (1)
  - ILEUS PARALYTIC [None]
